FAERS Safety Report 7741589-4 (Version None)
Quarter: 2011Q3

REPORT INFORMATION
  Report Type: 
  Country: None (occurrence: None)
  Receive Date: 20110909
  Receipt Date: 20110901
  Transmission Date: 20111222
  Serious: Yes (Hospitalization, Other)
  Sender: FDA-Public Use
  Company Number: US-ASTRAZENECA-2011SE50649

PATIENT
  Age: 80 Year
  Sex: Male

DRUGS (9)
  1. FENTANYL-100 [Suspect]
     Indication: EPIDURAL ANAESTHESIA
     Dosage: 400 MICROGRAM
     Route: 008
  2. ASPIRIN [Concomitant]
  3. SAXAGLIPTIN CODE NOT BROKEN [Suspect]
     Indication: TYPE 2 DIABETES MELLITUS
     Route: 065
     Dates: start: 20110217, end: 20110629
  4. SAXAGLIPTIN CODE NOT BROKEN [Suspect]
     Route: 065
     Dates: start: 20110711
  5. ANGIOTENSIN CONVERTING ENZYME INHIBITOR [Concomitant]
  6. ROPIVACAINE HCL [Suspect]
     Indication: EPIDURAL ANAESTHESIA
     Dosage: 400 MICROGRAM
     Route: 008
  7. DIURETICS [Concomitant]
  8. STATIN [Concomitant]
  9. ADRENALIN IN OIL INJ [Suspect]
     Indication: EPIDURAL ANAESTHESIA
     Dosage: 400 MICROGRAM
     Route: 008

REACTIONS (4)
  - ANAEMIA [None]
  - HYPOTENSION [None]
  - THROMBOCYTOPENIA [None]
  - HAEMORRHAGE [None]
